FAERS Safety Report 9981206 (Version 1)
Quarter: 2014Q2

REPORT INFORMATION
  Report Type: Spontaneous
  Country: US (occurrence: US)
  Receive Date: 20140307
  Receipt Date: 20140410
  Transmission Date: 20141212
  Serious: Yes (Hospitalization, Other)
  Sender: FDA-Public Use
  Company Number: 2014SP000404

PATIENT
  Age: 74 Year
  Sex: Female
  Weight: 76 kg

DRUGS (8)
  1. FLUOROURACIL [Suspect]
     Indication: ADENOCARCINOMA OF COLON
     Route: 040
     Dates: start: 20131210, end: 20131224
  2. FLUOROURACIL [Suspect]
     Indication: ADENOCARCINOMA OF COLON
     Route: 042
     Dates: start: 20131225, end: 20131226
  3. FLUOROURACIL [Suspect]
     Indication: ADENOCARCINOMA OF COLON
     Route: 042
     Dates: start: 20140212, end: 20140214
  4. FLUOROURACIL [Suspect]
     Indication: ADENOCARCINOMA OF COLON
     Route: 042
     Dates: start: 20131210
  5. ELOXATIN [Concomitant]
     Indication: ADENOCARCINOMA OF COLON
     Route: 042
     Dates: start: 20131210, end: 20131224
  6. ELOXATIN [Concomitant]
     Indication: ADENOCARCINOMA OF COLON
     Route: 042
     Dates: end: 20140212
  7. CALCIUM FOLINATE [Concomitant]
     Route: 042
     Dates: start: 20131210, end: 20131224
  8. CALCIUM FOLINATE [Concomitant]
     Dates: end: 20140212

REACTIONS (3)
  - Angina pectoris [Recovered/Resolved]
  - Chest discomfort [Recovered/Resolved]
  - Limb discomfort [Recovered/Resolved]
